FAERS Safety Report 16165391 (Version 4)
Quarter: 2019Q2

REPORT INFORMATION
  Report Type: Spontaneous
  Country: JP (occurrence: JP)
  Receive Date: 20190405
  Receipt Date: 20190626
  Transmission Date: 20190711
  Serious: Yes (Hospitalization, Disabling)
  Sender: FDA-Public Use
  Company Number: PHJP2019JP003996

PATIENT
  Age: 77 Year
  Sex: Male
  Weight: 59.4 kg

DRUGS (7)
  1. DOVONEX [Concomitant]
     Active Substance: CALCIPOTRIENE
     Indication: PSORIASIS
     Dosage: 1 G, BID
     Route: 061
     Dates: start: 20150226
  2. COSENTYX [Suspect]
     Active Substance: SECUKINUMAB
     Indication: PSORIASIS
     Dosage: 300 MG, QW
     Route: 058
     Dates: start: 20180524, end: 20180628
  3. FULMETA [Concomitant]
     Active Substance: MOMETASONE
     Indication: PSORIASIS
     Dosage: 1 G, BID
     Route: 065
     Dates: start: 20170622
  4. ASTOMIN [Concomitant]
     Active Substance: DIMEMORFAN
     Indication: COUGH
     Dosage: 10 MG, PRN
     Route: 048
  5. COSENTYX [Suspect]
     Active Substance: SECUKINUMAB
     Dosage: 300 MG, QMO
     Route: 058
     Dates: start: 20180719
  6. STIBRON [Concomitant]
     Indication: PSORIASIS
     Dosage: 1 G, BID
     Route: 061
     Dates: start: 20180301
  7. COSENTYX [Suspect]
     Active Substance: SECUKINUMAB
     Dosage: 300 MG, QMO
     Route: 058
     Dates: start: 20190428

REACTIONS (9)
  - Supraventricular extrasystoles [Unknown]
  - Gait disturbance [Unknown]
  - Hemiplegia [Unknown]
  - Bundle branch block right [Unknown]
  - Thalamus haemorrhage [Recovered/Resolved with Sequelae]
  - Aphasia [Unknown]
  - Movement disorder [Unknown]
  - Language disorder [Unknown]
  - Fall [Unknown]

NARRATIVE: CASE EVENT DATE: 20190331
